FAERS Safety Report 17803725 (Version 1)
Quarter: 2020Q2

REPORT INFORMATION
  Report Type: Spontaneous
  Country: PT (occurrence: PT)
  Receive Date: 20200519
  Receipt Date: 20200519
  Transmission Date: 20200714
  Serious: Yes (Hospitalization, Other)
  Sender: FDA-Public Use
  Company Number: PT-MYLANLABS-2020M1048328

PATIENT
  Age: 63 Year
  Sex: Male

DRUGS (3)
  1. ENOXAPARIN [Suspect]
     Active Substance: ENOXAPARIN
     Indication: ANTICOAGULANT THERAPY
     Dosage: 80 MG TWICE DAILY
  2. CLOPIDOGREL [Suspect]
     Active Substance: CLOPIDOGREL BISULFATE
     Indication: ANTICOAGULANT THERAPY
     Dosage: 75 MG ONCE DAILY
  3. ACETYLSALICYLIC ACID [Suspect]
     Active Substance: ASPIRIN
     Indication: ANTICOAGULANT THERAPY
     Dosage: 100 MG/DAILY

REACTIONS (11)
  - Hypotension [Recovered/Resolved]
  - Abdominal mass [Recovered/Resolved]
  - Haemoglobin decreased [Recovered/Resolved]
  - Splenic rupture [Recovered/Resolved]
  - Splenic haematoma [Recovered/Resolved]
  - Abdominal pain [Recovered/Resolved]
  - Abdominal tenderness [Recovered/Resolved]
  - Thrombocytosis [Recovered/Resolved]
  - Nausea [Recovered/Resolved]
  - Splenic haemorrhage [Recovered/Resolved]
  - Pneumonia [Recovered/Resolved]
